FAERS Safety Report 4449481-8 (Version None)
Quarter: 2004Q3

REPORT INFORMATION
  Report Type: 
  Country: None (occurrence: None)
  Receive Date: 20040913
  Receipt Date: 20040827
  Transmission Date: 20050211
  Serious: Yes (Hospitalization)
  Sender: FDA-Public Use
  Company Number: S04-SWI-04023-01

PATIENT
  Age: 77 Year
  Sex: Female

DRUGS (5)
  1. CITALOPRAM HYDROBROMIDE [Suspect]
     Dosage: 20 MG QD PO
     Route: 048
     Dates: start: 20040427
  2. SINTROM [Suspect]
     Indication: ANTICOAGULANT THERAPY
     Dosage: 1MG PO
     Route: 048
     Dates: start: 20040428, end: 20040502
  3. HEPARIN [Suspect]
     Indication: ANTICOAGULANT THERAPY
     Dosage: 12500  IV
     Route: 042
     Dates: start: 20040428
  4. LORAZEPAM [Concomitant]
  5. PRAVASTATIN SODIUM [Concomitant]

REACTIONS (3)
  - ABDOMINAL HAEMATOMA [None]
  - ACTIVATED PARTIAL THROMBOPLASTIN TIME PROLONGED [None]
  - MUSCLE HAEMORRHAGE [None]
